FAERS Safety Report 20894352 (Version 1)
Quarter: 2022Q2

REPORT INFORMATION
  Report Type: Spontaneous
  Country: US (occurrence: US)
  Receive Date: 20220531
  Receipt Date: 20220531
  Transmission Date: 20220720
  Serious: No
  Sender: FDA-Public Use
  Company Number: US-PFIZER INC-202200765873

PATIENT
  Age: 61 Year
  Sex: Female

DRUGS (6)
  1. XELJANZ XR [Suspect]
     Active Substance: TOFACITINIB CITRATE
     Dosage: 11 MG, 1X/DAY
     Route: 048
     Dates: start: 201801, end: 20220511
  2. MAGNESIUM SULFATE [Concomitant]
     Active Substance: MAGNESIUM SULFATE
     Dosage: MAG-OXIDE MAGNESIUM 200 MG TABLET
  3. ZINC [Concomitant]
     Active Substance: ZINC
     Dosage: ZINC-220 50(220)MG CAPSULE
  4. MINERALS\VITAMINS [Concomitant]
     Active Substance: MINERALS\VITAMINS
     Dosage: UNK
  5. OMEGA-3 FATTY ACIDS [Concomitant]
     Active Substance: OMEGA-3 FATTY ACIDS
     Dosage: UNK
  6. VITAMIN D2 OLEOSA [Concomitant]
     Dosage: 1250 MCG CAPSULE

REACTIONS (1)
  - Drug ineffective [Unknown]
